FAERS Safety Report 24247248 (Version 2)
Quarter: 2025Q1

REPORT INFORMATION
  Report Type: Spontaneous
  Country: CA (occurrence: CA)
  Receive Date: 20240826
  Receipt Date: 20250204
  Transmission Date: 20250409
  Serious: Yes (Hospitalization)
  Sender: SANDOZ
  Company Number: CA-SANDOZ-SDZ2024CA074927

PATIENT
  Age: 26 Year
  Sex: Female

DRUGS (13)
  1. ATIVAN [Suspect]
     Active Substance: LORAZEPAM
     Indication: Product used for unknown indication
     Route: 065
  2. CLOBAZAM [Suspect]
     Active Substance: CLOBAZAM
     Indication: Product used for unknown indication
     Route: 065
  3. DIVALPROEX SODIUM [Suspect]
     Active Substance: DIVALPROEX SODIUM
     Indication: Product used for unknown indication
     Dosage: 500 MG, BID (2 EVERY 1 DAYS)
     Route: 065
  4. NAPROXEN [Suspect]
     Active Substance: NAPROXEN
     Indication: Product used for unknown indication
     Route: 065
  5. XCOPRI [Suspect]
     Active Substance: CENOBAMATE
     Dosage: 100 MG, QD
     Route: 048
  6. XCOPRI [Suspect]
     Active Substance: CENOBAMATE
     Indication: Partial seizures
     Dosage: 12.5 MG, QD
     Route: 048
  7. XCOPRI [Suspect]
     Active Substance: CENOBAMATE
     Dosage: 150 MG, QD
     Route: 048
  8. XCOPRI [Suspect]
     Active Substance: CENOBAMATE
     Dosage: 150 MG, QD
     Route: 048
  9. XCOPRI [Suspect]
     Active Substance: CENOBAMATE
     Dosage: 200 MG, QD
     Route: 048
  10. XCOPRI [Suspect]
     Active Substance: CENOBAMATE
     Indication: Epilepsy
     Dosage: 25 MG, QD
     Route: 048
  11. XCOPRI [Suspect]
     Active Substance: CENOBAMATE
     Dosage: 50 MG, QD
     Route: 048
  12. XCOPRI [Suspect]
     Active Substance: CENOBAMATE
     Route: 048
  13. LEVETIRACETAM [Interacting]
     Active Substance: LEVETIRACETAM
     Indication: Product used for unknown indication
     Dosage: 1500 MG, BID (2 EVERY 1 DAYS)
     Route: 065

REACTIONS (8)
  - Dysarthria [Unknown]
  - Drug interaction [Unknown]
  - Drug level increased [Unknown]
  - Dysstasia [Unknown]
  - Dizziness [Unknown]
  - Overdose [Unknown]
  - Accidental overdose [Unknown]
  - Intentional dose omission [Unknown]
